FAERS Safety Report 6446521-1 (Version None)
Quarter: 2009Q4

REPORT INFORMATION
  Report Type: 
  Country: None (occurrence: None)
  Receive Date: 20091119
  Receipt Date: 20091110
  Transmission Date: 20100525
  Serious: Yes (Other)
  Sender: FDA-Public Use
  Company Number: US-NOVOPROD-300588

PATIENT
  Sex: Male
  Weight: 101.13 kg

DRUGS (3)
  1. NOVOLIN N INNOLET [Suspect]
     Indication: TYPE 2 DIABETES MELLITUS
     Dosage: UNKNOWN, ADMINISTERS A HALF HOUR BEFORE BED
     Route: 058
     Dates: start: 20010101
  2. NOVOLOG [Suspect]
     Indication: TYPE 2 DIABETES MELLITUS
     Dosage: UNKNOWN, ADMINISTERS IN AYTIME
     Route: 058
     Dates: start: 20010101
  3. ZAROXOLYN [Concomitant]
     Indication: PROPHYLAXIS
     Dosage: UNK

REACTIONS (4)
  - AORTIC VALVE DISEASE [None]
  - HYPOGLYCAEMIC UNCONSCIOUSNESS [None]
  - HYPOTENSION [None]
  - LOSS OF CONSCIOUSNESS [None]
